FAERS Safety Report 25900747 (Version 2)
Quarter: 2025Q4

REPORT INFORMATION
  Report Type: Report from Study
  Country: CA (occurrence: CA)
  Receive Date: 20251009
  Receipt Date: 20251028
  Transmission Date: 20260118
  Serious: Yes (Other)
  Sender: SAMSUNG BIOEPIS
  Company Number: CA-SAMSUNG BIOEPIS-SB-2024-38121

PATIENT
  Age: 39 Year
  Sex: Male
  Weight: 143 kg

DRUGS (7)
  1. RENFLEXIS [Suspect]
     Active Substance: INFLIXIMAB-ABDA
     Indication: Crohn^s disease
     Route: 042
     Dates: start: 20241003
  2. RENFLEXIS [Suspect]
     Active Substance: INFLIXIMAB-ABDA
     Route: 042
  3. RENFLEXIS [Suspect]
     Active Substance: INFLIXIMAB-ABDA
  4. RENFLEXIS [Suspect]
     Active Substance: INFLIXIMAB-ABDA
     Route: 042
     Dates: start: 20251002
  5. RENFLEXIS [Suspect]
     Active Substance: INFLIXIMAB-ABDA
     Route: 042
  6. HYDROCORTISONE [Concomitant]
     Active Substance: HYDROCORTISONE
     Indication: Premedication
     Route: 042
  7. HYDROCORTISONE [Concomitant]
     Active Substance: HYDROCORTISONE
     Route: 042

REACTIONS (18)
  - Pruritus [Unknown]
  - Oropharyngeal discomfort [Recovering/Resolving]
  - Rash erythematous [Recovering/Resolving]
  - Rash macular [Recovered/Resolved]
  - Urticaria [Unknown]
  - Pain of skin [Unknown]
  - Malaise [Recovered/Resolved]
  - Headache [Recovering/Resolving]
  - Burning sensation [Recovering/Resolving]
  - Skin exfoliation [Recovering/Resolving]
  - Erythema [Recovering/Resolving]
  - Skin irritation [Recovering/Resolving]
  - Rash pruritic [Recovered/Resolved]
  - Rash [Recovered/Resolved]
  - Product substitution issue [Unknown]
  - Product use issue [Unknown]
  - Feeling hot [Unknown]
  - Discomfort [Unknown]

NARRATIVE: CASE EVENT DATE: 20241107
